FAERS Safety Report 25359568 (Version 1)
Quarter: 2025Q2

REPORT INFORMATION
  Report Type: Spontaneous
  Country: US (occurrence: US)
  Receive Date: 20250526
  Receipt Date: 20250526
  Transmission Date: 20250717
  Serious: Yes (Other)
  Sender: DR REDDYS
  Company Number: US-DRL-USA-USA/2025/05/007402

PATIENT
  Age: 7 Decade
  Sex: Male

DRUGS (4)
  1. POSACONAZOLE [Suspect]
     Active Substance: POSACONAZOLE
     Indication: Antifungal prophylaxis
  2. PACRITINIB [Suspect]
     Active Substance: PACRITINIB
     Indication: Myelodysplastic syndrome
     Dosage: DOSE WAS PREEMPTIVELY REDUCED; DRUG WAS RECEIVED FOR 118 DAYS.
  3. PACRITINIB [Suspect]
     Active Substance: PACRITINIB
     Indication: Myelofibrosis
     Dosage: DOSE OF PACRITINIB WAS REDUCED TO 100MG DAILY
  4. PACRITINIB [Suspect]
     Active Substance: PACRITINIB
     Dosage: PACRITINIB DOSE WAS FURTHER REDUCED TO 100MG 3 TIMES A WEEK

REACTIONS (5)
  - Neutropenia [Unknown]
  - Drug interaction [Unknown]
  - Oedema peripheral [Unknown]
  - Dyspnoea [Unknown]
  - Cough [Unknown]
